FAERS Safety Report 8200482-3 (Version None)
Quarter: 2012Q1

REPORT INFORMATION
  Report Type: 
  Country: None (occurrence: None)
  Receive Date: 20120308
  Receipt Date: 20120229
  Transmission Date: 20120608
  Serious: Yes (Hospitalization, Other)
  Sender: FDA-Public Use
  Company Number: GB-GDP-12413141

PATIENT
  Age: 11 Year
  Sex: Male

DRUGS (1)
  1. BENZOYL PEROXIDE (BENZOYL PEROXIDE) [Suspect]
     Indication: PRODUCT USED FOR UNKNOWN INDICATION
     Dosage: TOPICAL
     Route: 061
     Dates: start: 20120130, end: 20120202

REACTIONS (3)
  - PRURITUS [None]
  - SWELLING [None]
  - ERYTHEMA [None]
